FAERS Safety Report 5788710-5 (Version None)
Quarter: 2008Q2

REPORT INFORMATION
  Report Type: 
  Country: None (occurrence: None)
  Receive Date: 20080618
  Receipt Date: 20071129
  Transmission Date: 20081010
  Serious: Yes (Other)
  Sender: FDA-Public Use
  Company Number: 200717785US

PATIENT
  Age: 64 Year
  Sex: Male

DRUGS (13)
  1. LANTUS [Suspect]
     Indication: TYPE 2 DIABETES MELLITUS
     Dosage: 10 U HS INJ
  2. GLIPIZIDE [Concomitant]
  3. NOVOLOG [Concomitant]
  4. JANUVIA [Concomitant]
  5. PIOGLITAZONE [Concomitant]
  6. ROSUVASTATIN (CRESTOR /01588601/) [Concomitant]
  7. HYDROCHLOROTHIAZIDE, TRIAMTERENE (TRIAMTERENE/HCTZ) [Concomitant]
  8. ZETIA [Concomitant]
  9. CARVEDILOL [Concomitant]
  10. LISINOPRIL [Concomitant]
  11. ACETYLSALICYLIC ACID (BAYER ASPIRIN) [Concomitant]
  12. INFLUENZA VACCINE [Concomitant]
  13. PNEUMOCOCCAL VACCINE [Concomitant]

REACTIONS (3)
  - BLOOD GLUCOSE INCREASED [None]
  - HYPOGLYCAEMIC UNCONSCIOUSNESS [None]
  - PYREXIA [None]
